FAERS Safety Report 15164196 (Version 2)
Quarter: 2019Q1

REPORT INFORMATION
  Report Type: Spontaneous
  Country: US (occurrence: US)
  Receive Date: 20180719
  Receipt Date: 20190320
  Transmission Date: 20190417
  Serious: Yes (Other)
  Sender: FDA-Public Use
  Company Number: US-ASTRAZENECA-2018SE91026

PATIENT
  Sex: Female
  Weight: 78.9 kg

DRUGS (20)
  1. TRADJENTA [Concomitant]
     Active Substance: LINAGLIPTIN
  2. AMLODIPINE [Concomitant]
     Active Substance: AMLODIPINE BESYLATE
  3. IBUPROFEN. [Concomitant]
     Active Substance: IBUPROFEN
  4. NEXIUM [Suspect]
     Active Substance: ESOMEPRAZOLE MAGNESIUM
     Route: 048
     Dates: start: 2013, end: 2015
  5. PREDNISONE. [Concomitant]
     Active Substance: PREDNISONE
  6. METOPROLOL. [Concomitant]
     Active Substance: METOPROLOL
  7. HYDROMORPHONE HYDROCHLORIDE. [Concomitant]
     Active Substance: HYDROMORPHONE HYDROCHLORIDE
  8. LISINOPRIL. [Concomitant]
     Active Substance: LISINOPRIL
  9. LOSARTAN. [Concomitant]
     Active Substance: LOSARTAN
  10. AMITRIPTYLINE [Concomitant]
     Active Substance: AMITRIPTYLINE
  11. ALPRAZOLAM. [Concomitant]
     Active Substance: ALPRAZOLAM
  12. PREDNISONE. [Concomitant]
     Active Substance: PREDNISONE
     Dates: start: 2015, end: 2016
  13. LEVOTHYROXINE. [Concomitant]
     Active Substance: LEVOTHYROXINE
  14. GLIPIZIDE. [Concomitant]
     Active Substance: GLIPIZIDE
  15. GABAPENTIN. [Concomitant]
     Active Substance: GABAPENTIN
  16. ATORVASTATIN [Concomitant]
     Active Substance: ATORVASTATIN
  17. NEXIUM [Suspect]
     Active Substance: ESOMEPRAZOLE MAGNESIUM
     Route: 048
     Dates: start: 2010, end: 2014
  18. LEVALBUTEROL. [Concomitant]
     Active Substance: LEVALBUTEROL
  19. TIZANIDINE. [Concomitant]
     Active Substance: TIZANIDINE
  20. CLOPIDOGREL [Concomitant]
     Active Substance: CLOPIDOGREL BISULFATE

REACTIONS (2)
  - Chronic kidney disease [Not Recovered/Not Resolved]
  - Acute kidney injury [Unknown]
